FAERS Safety Report 5938587-X (Version None)
Quarter: 2008Q4

REPORT INFORMATION
  Report Type: 
  Country: None (occurrence: None)
  Receive Date: 20081103
  Receipt Date: 20081024
  Transmission Date: 20090506
  Serious: Yes (Death)
  Sender: FDA-Public Use
  Company Number: GB-ABBOTT-08P-167-0465997-00

PATIENT
  Age: 26 Year
  Sex: Female

DRUGS (8)
  1. EPILIM [Suspect]
     Indication: DRUG USE FOR UNKNOWN INDICATION
     Route: 065
     Dates: start: 20030708
  2. CARBAMAZEPINE [Suspect]
     Indication: EPILEPSY
     Route: 065
     Dates: start: 20030101
  3. INFLUENZA VIRUS VACCINE POLYVALENT [Suspect]
     Indication: INFLUENZA IMMUNISATION
     Route: 030
     Dates: start: 20071220, end: 20071220
  4. AMOXICILLIN [Concomitant]
     Indication: URINARY TRACT INFECTION
     Route: 065
     Dates: start: 20071229
  5. CHLORAMPHENICOL [Concomitant]
     Indication: DRUG USE FOR UNKNOWN INDICATION
  6. NITROFURANTOIN [Concomitant]
     Indication: DRUG USE FOR UNKNOWN INDICATION
     Route: 065
     Dates: start: 19980527
  7. ACETAMINOPHEN [Concomitant]
     Indication: COUGH
     Route: 065
     Dates: start: 20071230
  8. COUGH MIXTURE [Concomitant]
     Indication: COUGH
     Route: 065
     Dates: start: 20071230

REACTIONS (4)
  - DRUG INTERACTION [None]
  - DRUG TOXICITY [None]
  - EPILEPSY [None]
  - URINARY TRACT INFECTION [None]
